FAERS Safety Report 8030419-1 (Version None)
Quarter: 2012Q1

REPORT INFORMATION
  Report Type: 
  Country: None (occurrence: None)
  Receive Date: 20120109
  Receipt Date: 20120109
  Transmission Date: 20120608
  Serious: Yes (Hospitalization)
  Sender: FDA-Public Use
  Company Number: None

PATIENT
  Age: 42 Year
  Sex: Female
  Weight: 108.86 kg

DRUGS (1)
  1. TOPAMAX [Suspect]
     Indication: MIGRAINE
     Dates: start: 20111116, end: 20111231

REACTIONS (6)
  - ANXIETY [None]
  - DEPRESSION [None]
  - DRUG DISPENSING ERROR [None]
  - CRYING [None]
  - ATRIAL FIBRILLATION [None]
  - INCORRECT DOSE ADMINISTERED [None]
